FAERS Safety Report 5565519-9 (Version None)
Quarter: 2007Q4

REPORT INFORMATION
  Report Type: 
  Country: None (occurrence: None)
  Receive Date: 20071218
  Receipt Date: 20071206
  Transmission Date: 20080405
  Serious: Yes (Death, Hospitalization)
  Sender: FDA-Public Use
  Company Number: US-SANOFI-SYNTHELABO-A03200706830

PATIENT
  Sex: Male
  Weight: 104.31 kg

DRUGS (11)
  1. LISINOPRIL [Concomitant]
     Route: 048
  2. CARVEDILOL [Concomitant]
     Route: 048
  3. CLONIDINE [Concomitant]
     Route: 048
  4. KLOR-CON [Concomitant]
     Route: 048
  5. HYDROCHLOROTHIAZIDE [Concomitant]
     Route: 048
  6. PLAVIX [Suspect]
     Indication: HYPERTENSION
     Route: 048
     Dates: start: 20070601
  7. ISOSORBIDE DINITRATE [Concomitant]
     Dosage: 60 MG
     Route: 048
  8. BENICAR [Concomitant]
     Route: 048
  9. MINOXIDIL [Concomitant]
     Route: 048
  10. LIPITOR [Concomitant]
     Route: 048
  11. GLUCOPHAGE [Concomitant]
     Route: 048

REACTIONS (6)
  - APHASIA [None]
  - BLINDNESS UNILATERAL [None]
  - HEMIPLEGIA [None]
  - RESPIRATORY FAILURE [None]
  - SWOLLEN TONGUE [None]
  - THROMBOTIC STROKE [None]
